FAERS Safety Report 14423763 (Version 1)
Quarter: 2018Q1

REPORT INFORMATION
  Report Type: Spontaneous
  Country: US (occurrence: US)
  Receive Date: 20180122
  Receipt Date: 20180122
  Transmission Date: 20180509
  Serious: Yes (Hospitalization)
  Sender: FDA-Public Use
  Company Number: None

PATIENT
  Age: 75 Year
  Sex: Female
  Weight: 52.16 kg

DRUGS (1)
  1. METOPROLOL XR [Suspect]
     Active Substance: METOPROLOL SUCCINATE
     Indication: HYPERTENSION
     Route: 048
     Dates: start: 20171215, end: 20180101

REACTIONS (3)
  - Product quality issue [None]
  - Blood pressure systolic increased [None]
  - Heart rate increased [None]

NARRATIVE: CASE EVENT DATE: 20180101
